FAERS Safety Report 6206177-X (Version None)
Quarter: 2009Q2

REPORT INFORMATION
  Report Type: 
  Country: None (occurrence: None)
  Receive Date: 20090526
  Receipt Date: 20090515
  Transmission Date: 20091009
  Serious: Yes (Hospitalization)
  Sender: FDA-Public Use
  Company Number: 2009SP001268

PATIENT
  Age: 65 Year
  Sex: Female

DRUGS (12)
  1. LUNESTA [Suspect]
     Indication: SLEEP DISORDER
     Dosage: 3 MG; HS; ORAL
     Route: 048
  2. AMBIEN [Concomitant]
  3. LISINOPRIL [Concomitant]
  4. SYNTHROID [Concomitant]
  5. FLEXERIL [Concomitant]
  6. MULTIVITAMIN /00831701/ [Concomitant]
  7. VITAMIN A [Concomitant]
  8. CALCIUM [Concomitant]
  9. NEXIUM [Concomitant]
  10. ATENOLOL [Concomitant]
  11. DOXYCYCLINE [Concomitant]
  12. CHEMOTHERAPUETICS [Concomitant]

REACTIONS (4)
  - BREAST CANCER RECURRENT [None]
  - FIBROCYSTIC BREAST DISEASE [None]
  - INSOMNIA [None]
  - OESOPHAGEAL ULCER [None]
